FAERS Safety Report 5604280-6 (Version None)
Quarter: 2008Q1

REPORT INFORMATION
  Report Type: 
  Country: None (occurrence: None)
  Receive Date: 20080128
  Receipt Date: 20080121
  Transmission Date: 20080703
  Serious: Yes (Hospitalization, Other)
  Sender: FDA-Public Use
  Company Number: AU-AVENTIS-200810810GDDC

PATIENT
  Age: 56 Year
  Sex: Male

DRUGS (13)
  1. LANTUS [Suspect]
     Route: 058
     Dates: start: 20070502
  2. FGF                                /00098901/ [Concomitant]
  3. NOVORAPID [Concomitant]
  4. LASIX [Concomitant]
  5. RAMIPRIL [Concomitant]
  6. ALBUTEROL [Concomitant]
  7. SPIROLACTONE [Concomitant]
  8. WARFARIN SODIUM [Concomitant]
  9. VITAMIN B NOS [Concomitant]
  10. ZOLOFT [Concomitant]
  11. PRAVACHOL [Concomitant]
  12. FISH OIL [Concomitant]
  13. UNKNOWN DRUG [Concomitant]

REACTIONS (2)
  - RENAL FAILURE ACUTE [None]
  - SEPSIS [None]
